FAERS Safety Report 12422932 (Version 1)
Quarter: 2016Q2

REPORT INFORMATION
  Report Type: Spontaneous
  Country: US (occurrence: None)
  Receive Date: 20160531
  Receipt Date: 20160531
  Transmission Date: 20160815
  Serious: Yes (Other)
  Sender: FDA-Public Use
  Company Number: None

PATIENT
  Age: 58 Year
  Sex: Male
  Weight: 108.86 kg

DRUGS (8)
  1. HYDROCHLORITHIAZIDE [Concomitant]
     Active Substance: HYDROCHLOROTHIAZIDE
  2. ADDERALL [Concomitant]
     Active Substance: AMPHETAMINE ASPARTATE\AMPHETAMINE SULFATE\DEXTROAMPHETAMINE SACCHARATE\DEXTROAMPHETAMINE SULFATE
  3. FORTESTA [Concomitant]
     Active Substance: TESTOSTERONE
  4. NIFEDIPINE ER [Concomitant]
     Active Substance: NIFEDIPINE
  5. ZESTRIL [Suspect]
     Active Substance: LISINOPRIL
     Indication: HYPERTENSION
     Dosage: 1 TABLET(S) IN THE MORNING TAKEN BY MOUTH
     Route: 048
     Dates: start: 20160228, end: 20160518
  6. ASPIRIN. [Concomitant]
     Active Substance: ASPIRIN
  7. 1 A DAY VITAMIN FOR MEN [Concomitant]
  8. ADVIL ALLERGY SINUS [Concomitant]
     Active Substance: CHLORPHENIRAMINE MALEATE\IBUPROFEN\PSEUDOEPHEDRINE HYDROCHLORIDE

REACTIONS (13)
  - Headache [None]
  - Rhinorrhoea [None]
  - Cough [None]
  - Libido decreased [None]
  - Frustration tolerance decreased [None]
  - Nausea [None]
  - Sneezing [None]
  - Dizziness [None]
  - Weight decreased [None]
  - Insomnia [None]
  - Fatigue [None]
  - Muscle spasms [None]
  - Asthenia [None]

NARRATIVE: CASE EVENT DATE: 20160518
